FAERS Safety Report 7247239-8 (Version None)
Quarter: 2011Q1

REPORT INFORMATION
  Report Type: 
  Country: None (occurrence: None)
  Receive Date: 20110127
  Receipt Date: 20101130
  Transmission Date: 20110831
  Serious: No
  Sender: FDA-Public Use
  Company Number: US-BAYER-2010-001853

PATIENT
  Sex: Female

DRUGS (1)
  1. ALEVE (CAPLET) [Suspect]
     Dosage: 220 MG, ONCE
     Route: 048
     Dates: start: 20101130

REACTIONS (3)
  - THROAT IRRITATION [None]
  - ORAL DISCOMFORT [None]
  - DYSPHAGIA [None]
